FAERS Safety Report 17996889 (Version 1)
Quarter: 2020Q3

REPORT INFORMATION
  Report Type: Spontaneous
  Country: US (occurrence: US)
  Receive Date: 20200708
  Receipt Date: 20200708
  Transmission Date: 20201103
  Serious: Yes (Other)
  Sender: FDA-Public Use
  Company Number: US-SUPERNUS PHARMACEUTICALS, INC.-2020SUP00129

PATIENT
  Sex: Male

DRUGS (2)
  1. OXTELLAR XR [Suspect]
     Active Substance: OXCARBAZEPINE
     Dosage: 900 MG A DAY
     Dates: start: 201902, end: 201912
  2. TRILEPTAL [Suspect]
     Active Substance: OXCARBAZEPINE
     Dosage: 150 MG, 2X/DAY
     Dates: start: 201912

REACTIONS (2)
  - Seizure [Unknown]
  - Underdose [Unknown]

NARRATIVE: CASE EVENT DATE: 201912
